FAERS Safety Report 4390097-X (Version None)
Quarter: 2004Q3

REPORT INFORMATION
  Report Type: 
  Country: None (occurrence: None)
  Receive Date: 20040706
  Receipt Date: 20040310
  Transmission Date: 20050211
  Serious: Yes (Disabling, Other)
  Sender: FDA-Public Use
  Company Number: GB-MERCK-0403GBR00125

PATIENT
  Age: 62 Year
  Sex: Male

DRUGS (4)
  1. BUMETANIDE [Concomitant]
     Route: 048
  2. CARVEDILOL [Concomitant]
     Route: 048
  3. COZAAR [Suspect]
     Indication: HYPERTENSION
     Route: 048
     Dates: start: 19980324, end: 20031212
  4. METFORMIN [Concomitant]
     Route: 048

REACTIONS (1)
  - ECZEMA NUMMULAR [None]
